FAERS Safety Report 19014567 (Version 1)
Quarter: 2021Q1

REPORT INFORMATION
  Report Type: Report from Study
  Country: RO (occurrence: RO)
  Receive Date: 20210316
  Receipt Date: 20210316
  Transmission Date: 20210420
  Serious: Yes (Death, Other)
  Sender: FDA-Public Use
  Company Number: RO-GILEAD-2021-0520117

PATIENT
  Age: 70 Year
  Sex: Female

DRUGS (1)
  1. LEDIPASVIR/SOFOSBUVIR [Suspect]
     Active Substance: LEDIPASVIR\SOFOSBUVIR
     Indication: CHRONIC HEPATITIS C
     Dosage: 1 DOSAGE FORM (90MG/400MG), QD
     Route: 048
     Dates: start: 20201021, end: 20201215

REACTIONS (1)
  - Death [Fatal]

NARRATIVE: CASE EVENT DATE: 20201231
